FAERS Safety Report 7154636-8 (Version None)
Quarter: 2010Q4

REPORT INFORMATION
  Report Type: 
  Country: None (occurrence: None)
  Receive Date: 20101214
  Receipt Date: 20091111
  Transmission Date: 20110411
  Serious: No
  Sender: FDA-Public Use
  Company Number: US-AMGEN-KDL364751

PATIENT

DRUGS (2)
  1. ENBREL [Suspect]
     Indication: RHEUMATOID ARTHRITIS
     Dosage: 50 MG, QWK
     Route: 058
     Dates: start: 20090730
  2. HYDROXYCHLOROQUINE SULFATE [Concomitant]
     Dosage: UNK UNK, UNK
     Dates: start: 20090730

REACTIONS (9)
  - BUTTERFLY RASH [None]
  - DRUG DOSE OMISSION [None]
  - GAIT DISTURBANCE [None]
  - HEADACHE [None]
  - PAIN [None]
  - RHEUMATOID NODULE [None]
  - THERAPEUTIC RESPONSE DECREASED [None]
  - UPPER RESPIRATORY TRACT INFECTION [None]
  - WEIGHT INCREASED [None]
